FAERS Safety Report 14920601 (Version 2)
Quarter: 2018Q2

REPORT INFORMATION
  Report Type: Spontaneous
  Country: US (occurrence: US)
  Receive Date: 20180521
  Receipt Date: 20180521
  Transmission Date: 20180711
  Serious: Yes (Hospitalization, Other)
  Sender: FDA-Public Use
  Company Number: US-SHIRE-US201818829

PATIENT
  Age: 84 Year

DRUGS (1)
  1. LIALDA [Suspect]
     Active Substance: MESALAMINE
     Indication: COLITIS ULCERATIVE
     Dosage: 1.2 G, 2X/DAY:BID
     Route: 065
     Dates: start: 201803

REACTIONS (4)
  - Immune system disorder [Unknown]
  - Colitis ulcerative [Unknown]
  - Flatulence [Unknown]
  - Clostridium difficile infection [Unknown]
